FAERS Safety Report 5575042-3 (Version None)
Quarter: 2007Q4

REPORT INFORMATION
  Report Type: 
  Country: None (occurrence: None)
  Receive Date: 20071227
  Receipt Date: 20071217
  Transmission Date: 20080405
  Serious: Yes (Hospitalization)
  Sender: FDA-Public Use
  Company Number: BR-ABBOTT-07P-020-0431152-00

PATIENT
  Sex: Female

DRUGS (4)
  1. SYNTHROID [Suspect]
     Indication: HYPOTHYROIDISM
     Route: 048
     Dates: start: 20061201, end: 20070901
  2. SYNTHROID [Suspect]
     Dates: start: 20070901, end: 20071001
  3. SYNTHROID [Suspect]
     Dates: start: 20071001
  4. MULTI-VITAMINS [Concomitant]
     Indication: DRUG USE FOR UNKNOWN INDICATION

REACTIONS (6)
  - FAECES HARD [None]
  - FLATULENCE [None]
  - MATERNAL DRUGS AFFECTING FOETUS [None]
  - PREGNANCY [None]
  - SHORTENED CERVIX [None]
  - UTERINE CONTRACTIONS ABNORMAL [None]
